FAERS Safety Report 14227703 (Version 2)
Quarter: 2017Q4

REPORT INFORMATION
  Report Type: Spontaneous
  Country: CA (occurrence: CA)
  Receive Date: 20171127
  Receipt Date: 20171128
  Transmission Date: 20180321
  Serious: Yes (Other)
  Sender: FDA-Public Use
  Company Number: CA-PFIZER INC-2017507870

PATIENT
  Age: 47 Year
  Sex: Female
  Weight: 121 kg

DRUGS (15)
  1. ABATACEPT [Suspect]
     Active Substance: ABATACEPT
     Dosage: 125 MG, QWK
     Route: 058
  2. ACETAMINOPHEN AND CODEINE [Concomitant]
     Active Substance: ACETAMINOPHEN\CODEINE PHOSPHATE
     Dosage: 30 MG, UNK
  3. BISOPROLOL [Concomitant]
     Active Substance: BISOPROLOL
     Dosage: 100 MG, QD
  4. TEMAZEPAM. [Concomitant]
     Active Substance: TEMAZEPAM
     Dosage: UNK
  5. FOLIC ACID. [Concomitant]
     Active Substance: FOLIC ACID
     Dosage: UNK UNK, QD
  6. LEFLUNOMIDE. [Suspect]
     Active Substance: LEFLUNOMIDE
     Dosage: UNK
  7. PANTOPRAZOLE [Concomitant]
     Active Substance: PANTOPRAZOLE
     Dosage: 40 MG, BID
  8. ENBREL [Suspect]
     Active Substance: ETANERCEPT
     Dosage: 50 MG, QWK
     Route: 058
  9. DEXAMETHASONE. [Concomitant]
     Active Substance: DEXAMETHASONE
     Dosage: 4 MG, QD
  10. TOCILIZUMAB. [Suspect]
     Active Substance: TOCILIZUMAB
     Dosage: UNK
  11. PREDNISONE. [Concomitant]
     Active Substance: PREDNISONE
     Dosage: 20 MG, UNK
  12. TOFACITINIB [Suspect]
     Active Substance: TOFACITINIB
     Dosage: 5 MG, BID
  13. AZATHIOPRINE. [Suspect]
     Active Substance: AZATHIOPRINE
     Dosage: UNK
  14. METHOTREXATE SODIUM. [Suspect]
     Active Substance: METHOTREXATE SODIUM
     Dosage: 12.5 MG, QWK
     Route: 058
  15. HYDROXYCHLOROQUINE [Concomitant]
     Active Substance: HYDROXYCHLOROQUINE
     Dosage: UNK

REACTIONS (12)
  - Arthralgia [Unknown]
  - Musculoskeletal stiffness [Unknown]
  - Lymphadenopathy [Unknown]
  - Joint swelling [Unknown]
  - Hepatic enzyme increased [Unknown]
  - Thiopurine methyltransferase decreased [Unknown]
  - Malaise [Unknown]
  - Rash [Unknown]
  - Treatment failure [Unknown]
  - Headache [Unknown]
  - Sjogren^s syndrome [Unknown]
  - Drug ineffective [Unknown]
